FAERS Safety Report 6573812-6 (Version None)
Quarter: 2010Q1

REPORT INFORMATION
  Report Type: 
  Country: None (occurrence: None)
  Receive Date: 20100204
  Receipt Date: 20100204
  Transmission Date: 20100710
  Serious: Yes (Other)
  Sender: FDA-Public Use
  Company Number: None

PATIENT
  Age: 48 Year
  Sex: Female
  Weight: 57.1532 kg

DRUGS (1)
  1. ACIPHEX [Suspect]
     Indication: GASTRITIS EROSIVE
     Dosage: 20MG ONCE DAILY PO
     Route: 048
     Dates: start: 20091218, end: 20100128

REACTIONS (1)
  - RASH GENERALISED [None]
